FAERS Safety Report 7686406-6 (Version None)
Quarter: 2011Q3

REPORT INFORMATION
  Report Type: 
  Country: None (occurrence: None)
  Receive Date: 20110816
  Receipt Date: 20110803
  Transmission Date: 20111222
  Serious: Yes (Other)
  Sender: FDA-Public Use
  Company Number: CA-ELI_LILLY_AND_COMPANY-CA201108001126

PATIENT
  Sex: Female

DRUGS (10)
  1. ZYPREXA [Suspect]
     Dosage: 10 MG, UNK
  2. ZYPREXA [Suspect]
     Dosage: 15 MG, UNK
  3. ZYPREXA [Suspect]
     Dosage: 5 MG, UNK
     Dates: start: 19970912
  4. ZYPREXA [Suspect]
     Dosage: 7.5 MG, UNK
  5. CLONAZEPAM [Concomitant]
  6. EFFEXOR XR [Concomitant]
  7. SEROQUEL [Concomitant]
  8. DALMANE [Concomitant]
  9. RISPERDAL [Concomitant]
  10. ZYPREXA [Suspect]
     Dosage: 12.5 MG, UNK

REACTIONS (11)
  - TYPE 2 DIABETES MELLITUS [None]
  - INTRAOCULAR PRESSURE INCREASED [None]
  - MICROALBUMINURIA [None]
  - PERIPHERAL ISCHAEMIA [None]
  - CEREBROVASCULAR ACCIDENT [None]
  - BLADDER DILATATION [None]
  - IMMUNE TOLERANCE INDUCTION [None]
  - URINARY TRACT INFECTION [None]
  - DIABETIC NEPHROPATHY [None]
  - HYPERLIPIDAEMIA [None]
  - HYPERTENSION [None]
